FAERS Safety Report 6220076-9 (Version None)
Quarter: 2009Q2

REPORT INFORMATION
  Report Type: 
  Country: None (occurrence: None)
  Receive Date: 20090609
  Receipt Date: 20090528
  Transmission Date: 20091009
  Serious: Yes (Other)
  Sender: FDA-Public Use
  Company Number: FR-CELGENEUS-056-20484-09060213

PATIENT
  Sex: Female
  Weight: 93 kg

DRUGS (4)
  1. INNOHEP [Suspect]
     Route: 058
     Dates: start: 20030304, end: 20030101
  2. INNOHEP [Suspect]
  3. ACENOCOUMAROL [Concomitant]
     Route: 065
     Dates: end: 20030304
  4. ACENOCOUMAROL [Concomitant]
     Route: 065

REACTIONS (3)
  - ABORTION SPONTANEOUS [None]
  - DRUG EXPOSURE DURING PREGNANCY [None]
  - ECLAMPSIA [None]
